FAERS Safety Report 18597055 (Version 1)
Quarter: 2020Q4

REPORT INFORMATION
  Report Type: Spontaneous
  Country: IT (occurrence: IT)
  Receive Date: 20201209
  Receipt Date: 20201209
  Transmission Date: 20210114
  Serious: Yes (Hospitalization, Other)
  Sender: FDA-Public Use
  Company Number: IT-FRESENIUS KABI-FK202013038

PATIENT
  Age: 44 Year
  Sex: Female

DRUGS (13)
  1. HALOPERIDOL INJECTION (MANUFACTURER UNKNOWN) [Suspect]
     Active Substance: HALOPERIDOL LACTATE
     Indication: DRUG THERAPY
     Route: 030
     Dates: start: 201809
  2. ARIPIPRAZOLE. [Suspect]
     Active Substance: ARIPIPRAZOLE
     Route: 030
  3. CLOZAPINE. [Suspect]
     Active Substance: CLOZAPINE
     Indication: DRUG THERAPY
     Route: 065
     Dates: start: 2018
  4. PROMAZINE [Suspect]
     Active Substance: PROMAZINE
     Indication: DRUG THERAPY
     Route: 030
     Dates: start: 201809
  5. ARIPIPRAZOLE. [Suspect]
     Active Substance: ARIPIPRAZOLE
     Indication: DRUG THERAPY
     Route: 030
     Dates: start: 201809
  6. CHLORPROMAZINE. [Suspect]
     Active Substance: CHLORPROMAZINE
     Indication: DRUG THERAPY
     Route: 047
  7. LORAZEPAM. [Concomitant]
     Active Substance: LORAZEPAM
     Route: 030
  8. DELORAZEPAM [Concomitant]
     Active Substance: DELORAZEPAM
     Route: 030
  9. ARIPIPRAZOLE. [Suspect]
     Active Substance: ARIPIPRAZOLE
     Route: 048
  10. VALPROATE [Suspect]
     Active Substance: VALPROIC ACID
     Indication: DRUG THERAPY
     Route: 042
     Dates: start: 201809
  11. LORAZEPAM. [Concomitant]
     Active Substance: LORAZEPAM
     Indication: DRUG THERAPY
     Route: 030
     Dates: start: 201809
  12. CLOZAPINE. [Suspect]
     Active Substance: CLOZAPINE
     Route: 065
  13. DELORAZEPAM [Concomitant]
     Active Substance: DELORAZEPAM
     Indication: DRUG THERAPY
     Route: 042
     Dates: start: 201809

REACTIONS (1)
  - Neuroleptic malignant syndrome [Recovered/Resolved]
